FAERS Safety Report 6853841-5 (Version None)
Quarter: 2010Q3

REPORT INFORMATION
  Report Type: 
  Country: None (occurrence: None)
  Receive Date: 20100717
  Receipt Date: 20071219
  Transmission Date: 20110219
  Serious: No
  Sender: FDA-Public Use
  Company Number: US-PFIZER INC-2007107593

PATIENT
  Sex: Female
  Weight: 84.5 kg

DRUGS (4)
  1. CHANTIX [Suspect]
     Indication: SMOKING CESSATION THERAPY
     Dates: start: 20071201
  2. METOPROLOL [Concomitant]
  3. TRIAMTERENE AND HYDROCHLOROTHIAZIDE [Concomitant]
  4. MULTI-VITAMINS [Concomitant]

REACTIONS (4)
  - PAIN [None]
  - PRURITUS [None]
  - RASH [None]
  - URINE ANALYSIS ABNORMAL [None]
